FAERS Safety Report 16052691 (Version 1)
Quarter: 2019Q1

REPORT INFORMATION
  Report Type: Report from Study
  Country: US (occurrence: US)
  Receive Date: 20190308
  Receipt Date: 20190308
  Transmission Date: 20190418
  Serious: Yes (Hospitalization, Other)
  Sender: FDA-Public Use
  Company Number: US-JNJFOC-20190238051

PATIENT
  Age: 91 Year
  Sex: Female

DRUGS (15)
  1. IMBRUVICA [Suspect]
     Active Substance: IBRUTINIB
     Indication: CHRONIC LYMPHOCYTIC LEUKAEMIA
     Route: 048
     Dates: start: 20190115, end: 20190220
  2. TOCOPHEROL [Concomitant]
     Active Substance: TOCOPHEROL
  3. XALATAN [Concomitant]
     Active Substance: LATANOPROST
  4. AMLODIPINE BESYLATE. [Concomitant]
     Active Substance: AMLODIPINE BESYLATE
  5. TRESIBA [Concomitant]
     Active Substance: INSULIN DEGLUDEC
  6. SODIUM BICARBONATE. [Concomitant]
     Active Substance: SODIUM BICARBONATE
  7. LEVOTHYROXINE. [Concomitant]
     Active Substance: LEVOTHYROXINE
  8. AGGRENOX [Concomitant]
     Active Substance: ASPIRIN\DIPYRIDAMOLE
  9. VITAMIN D3 [Concomitant]
     Active Substance: CHOLECALCIFEROL
  10. LOVASTATIN. [Concomitant]
     Active Substance: LOVASTATIN
  11. ENALAPRIL [Concomitant]
     Active Substance: ENALAPRIL
  12. TRADJENTA [Concomitant]
     Active Substance: LINAGLIPTIN
  13. BENADRYL [Concomitant]
     Active Substance: DIPHENHYDRAMINE HYDROCHLORIDE
  14. RITUXAN [Concomitant]
     Active Substance: RITUXIMAB
     Route: 042
  15. TIMOLOL. [Concomitant]
     Active Substance: TIMOLOL

REACTIONS (3)
  - Renal failure [Not Recovered/Not Resolved]
  - Lip blister [Unknown]
  - Stomatitis [Unknown]

NARRATIVE: CASE EVENT DATE: 20190220
